FAERS Safety Report 23293833 (Version 2)
Quarter: 2023Q4

REPORT INFORMATION
  Report Type: Spontaneous
  Country: US (occurrence: US)
  Receive Date: 20231213
  Receipt Date: 20231219
  Transmission Date: 20240110
  Serious: Yes (Hospitalization, Other)
  Sender: FDA-Public Use
  Company Number: US-SANDOZ-SDZ2023US065488

PATIENT
  Age: 31 Year
  Sex: Female

DRUGS (4)
  1. HEPARIN [Suspect]
     Active Substance: HEPARIN SODIUM
     Dosage: 1.3 MG/KG (100 MG)
     Route: 065
  2. HEPARIN [Suspect]
     Active Substance: HEPARIN SODIUM
     Indication: Anticoagulant therapy
     Dosage: 80 MG, BID
     Route: 042
  3. WARFARIN [Concomitant]
     Active Substance: WARFARIN
     Dosage: 5 MG, QD
     Route: 065
  4. WARFARIN [Concomitant]
     Active Substance: WARFARIN
     Indication: Product used for unknown indication
     Dosage: UNK
     Route: 065

REACTIONS (2)
  - Prosthetic cardiac valve thrombosis [Unknown]
  - Maternal exposure during pregnancy [Unknown]
